FAERS Safety Report 9919573 (Version 1)
Quarter: 2014Q1

REPORT INFORMATION
  Report Type: Spontaneous
  Country: US (occurrence: US)
  Receive Date: 20140224
  Receipt Date: 20140224
  Transmission Date: 20141002
  Serious: Yes (Other)
  Sender: FDA-Public Use
  Company Number: US-GLAXOSMITHKLINE-A1061854A

PATIENT
  Sex: Female

DRUGS (2)
  1. TUMS [Suspect]
     Indication: PRODUCT USED FOR UNKNOWN INDICATION
  2. CHAPSTICK [Suspect]

REACTIONS (1)
  - Dependence [Not Recovered/Not Resolved]
